FAERS Safety Report 6287883-8 (Version None)
Quarter: 2009Q3

REPORT INFORMATION
  Report Type: 
  Country: None (occurrence: None)
  Receive Date: 20090729
  Receipt Date: 20090720
  Transmission Date: 20100115
  Serious: Yes (Hospitalization)
  Sender: FDA-Public Use
  Company Number: GB-JNJFOC-20090500092

PATIENT
  Sex: Male
  Weight: 84 kg

DRUGS (3)
  1. INTELENCE [Suspect]
     Indication: HIV INFECTION
     Route: 048
  2. RALTEGRAVIR [Concomitant]
     Indication: HIV INFECTION
  3. TRUVADA [Concomitant]
     Indication: HIV INFECTION
     Route: 048

REACTIONS (2)
  - ESCHERICHIA INFECTION [None]
  - HAEMOLYTIC URAEMIC SYNDROME [None]
